FAERS Safety Report 12672473 (Version 1)
Quarter: 2016Q3

REPORT INFORMATION
  Report Type: Spontaneous
  Country: US (occurrence: US)
  Receive Date: 20160822
  Receipt Date: 20160822
  Transmission Date: 20161109
  Serious: No
  Sender: FDA-Public Use
  Company Number: US-JNJFOC-20160709997

PATIENT
  Sex: Female
  Weight: 56.7 kg

DRUGS (7)
  1. SINGULAIR [Concomitant]
     Active Substance: MONTELUKAST SODIUM
     Indication: ASTHMA
     Dosage: 15 YEARS
     Route: 065
  2. WOMENS ROGAINE UNSCENTED [Suspect]
     Active Substance: MINOXIDIL
     Indication: ALOPECIA
     Dosage: SQUIRT DOWN 10 DIFFERENT PARTS
     Route: 061
  3. RECLIPSEN [Concomitant]
     Active Substance: DESOGESTREL\ETHINYL ESTRADIOL
     Indication: NEOPLASM PROPHYLAXIS
     Dosage: 0.15/30MMG YEARS
     Route: 065
  4. SINGULAIR [Concomitant]
     Active Substance: MONTELUKAST SODIUM
     Indication: MULTIPLE ALLERGIES
     Dosage: 15 YEARS
     Route: 065
  5. PULMICORT TURBUHALER [Concomitant]
     Active Substance: BUDESONIDE
     Indication: ASTHMA
     Dosage: G2 PUFFS, 3-4 YEARS
     Route: 065
  6. PROAIR HFA [Concomitant]
     Active Substance: ALBUTEROL SULFATE
     Indication: ASTHMA
     Dosage: AS NEEDED YEARS
     Route: 065
  7. WOMENS ROGAINE UNSCENTED [Suspect]
     Active Substance: MINOXIDIL
     Route: 061

REACTIONS (7)
  - Overdose [Not Recovered/Not Resolved]
  - Hair growth abnormal [Not Recovered/Not Resolved]
  - Product use issue [Not Recovered/Not Resolved]
  - Therapeutic response unexpected [Unknown]
  - Wrong technique in product usage process [Not Recovered/Not Resolved]
  - Off label use [Not Recovered/Not Resolved]
  - Medication residue present [Not Recovered/Not Resolved]
